FAERS Safety Report 4956081-X (Version None)
Quarter: 2006Q1

REPORT INFORMATION
  Report Type: 
  Country: None (occurrence: None)
  Receive Date: 20060328
  Receipt Date: 20050929
  Transmission Date: 20060701
  Serious: Yes (Hospitalization, Other)
  Sender: FDA-Public Use
  Company Number: US-MERCK-0510USA00279

PATIENT
  Age: 57 Year
  Sex: Male
  Weight: 102 kg

DRUGS (14)
  1. VIOXX [Suspect]
     Indication: RHEUMATOID ARTHRITIS
     Route: 048
     Dates: start: 19991111, end: 20040930
  2. VIOXX [Suspect]
     Indication: ARTHRALGIA
     Route: 048
     Dates: start: 19991111, end: 20040930
  3. TOPROL-XL [Concomitant]
     Indication: HYPERTENSION
     Route: 065
     Dates: start: 20030101
  4. CARDIZEM [Concomitant]
     Indication: HYPERTENSION
     Route: 065
     Dates: start: 20010101, end: 20030101
  5. CARTIA XT [Concomitant]
     Route: 065
  6. METHOTREXATE [Concomitant]
     Indication: RHEUMATOID ARTHRITIS
     Route: 065
     Dates: start: 19970901
  7. ENBREL [Concomitant]
     Route: 065
     Dates: start: 19990501, end: 20040211
  8. PREDNISONE [Concomitant]
     Route: 065
     Dates: start: 20010201
  9. FOLIC ACID [Concomitant]
     Route: 065
  10. FUROSEMIDE [Concomitant]
     Route: 065
  11. HUMIRA [Concomitant]
     Route: 065
  12. ALLEGRA [Concomitant]
     Route: 065
  13. RHEUMATREX [Concomitant]
     Route: 065
  14. ASPIRIN [Concomitant]
     Route: 048

REACTIONS (7)
  - ARTHROPATHY [None]
  - BLOOD PRESSURE DECREASED [None]
  - CARDIAC DISORDER [None]
  - INTERMITTENT CLAUDICATION [None]
  - MYOCARDIAL INFARCTION [None]
  - NAUSEA [None]
  - PNEUMONIA [None]
